FAERS Safety Report 24599820 (Version 3)
Quarter: 2024Q4

REPORT INFORMATION
  Report Type: Spontaneous
  Country: US (occurrence: US)
  Receive Date: 20241110
  Receipt Date: 20241205
  Transmission Date: 20250115
  Serious: No
  Sender: SANOFI AVENTIS
  Company Number: US-SA-2024SA317124

PATIENT
  Age: 38 Year
  Sex: Male

DRUGS (6)
  1. DUPIXENT [Suspect]
     Active Substance: DUPILUMAB
     Indication: Asthma
     Dosage: 300 MG, QOW
     Route: 058
  2. DUPIXENT [Suspect]
     Active Substance: DUPILUMAB
     Indication: Asthma
     Dosage: 300 MG, QOW
     Route: 058
  3. DUPIXENT [Suspect]
     Active Substance: DUPILUMAB
     Indication: Eosinophilia
  4. DUPIXENT [Suspect]
     Active Substance: DUPILUMAB
     Indication: Eosinophilia
  5. DUPIXENT [Suspect]
     Active Substance: DUPILUMAB
  6. DUPIXENT [Suspect]
     Active Substance: DUPILUMAB

REACTIONS (3)
  - Respiratory tract congestion [Unknown]
  - Condition aggravated [Unknown]
  - Swelling [Unknown]

NARRATIVE: CASE EVENT DATE: 20240101
